FAERS Safety Report 7877676-X (Version None)
Quarter: 2011Q4

REPORT INFORMATION
  Report Type: 
  Country: None (occurrence: None)
  Receive Date: 20111031
  Receipt Date: 20111031
  Transmission Date: 20120403
  Serious: Yes (Other)
  Sender: FDA-Public Use
  Company Number: None

PATIENT
  Age: 59 Year
  Sex: Male
  Weight: 102.05 kg

DRUGS (22)
  1. CRESTOR [Suspect]
     Indication: HYPERLIPIDAEMIA
     Dosage: 5 MG -1/2 TABLET-
     Route: 048
     Dates: start: 20100811, end: 20110919
  2. OMEPRAZOLE [Concomitant]
     Route: 048
  3. FOSAMPRENAVIR [Concomitant]
  4. TENOFOVIR DISOPROXIL FUMARATE [Concomitant]
     Route: 048
  5. FENTANYL-100 [Concomitant]
     Route: 062
  6. LISINOPRIL [Concomitant]
     Route: 048
  7. FENTANYL-100 [Concomitant]
     Route: 062
  8. CYANOCOBALAMIN [Concomitant]
     Route: 030
  9. NOVULIN R [Concomitant]
  10. FENOFIBRATE [Concomitant]
     Route: 048
  11. ABACAVIR [Concomitant]
     Route: 048
  12. , FLUNISOLIDE 0.025% NASAL SPRAY [Concomitant]
     Route: 045
  13. NOVULIN N [Concomitant]
  14. TERAZOSIN HCL [Concomitant]
     Route: 048
  15. FUROSEMIDE [Concomitant]
     Route: 048
  16. CARVEDILOL [Concomitant]
     Route: 048
  17. BUPROPION HCL [Concomitant]
     Route: 048
  18. HYDROCODONE BITARTRATE + ACETAMINOPHEN [Concomitant]
     Route: 048
  19. TESTOSTERONE [Concomitant]
     Route: 030
  20. WARFARIN SODIUM [Concomitant]
     Route: 048
  21. GABAPENTIN [Concomitant]
     Route: 048
  22. METOCLOPRAMIDE [Concomitant]
     Route: 048

REACTIONS (2)
  - BLOOD CREATININE INCREASED [None]
  - PROTEINURIA [None]
